FAERS Safety Report 23286560 (Version 1)
Quarter: 2023Q4

REPORT INFORMATION
  Report Type: Spontaneous
  Country: FR (occurrence: FR)
  Receive Date: 20231212
  Receipt Date: 20231212
  Transmission Date: 20240110
  Serious: Yes (Other)
  Sender: FDA-Public Use
  Company Number: FR-SANOFI-AVENTIS R+D-2023SA095383

PATIENT
  Age: 53 Year
  Sex: Male

DRUGS (13)
  1. KETOPROFEN [Suspect]
     Active Substance: KETOPROFEN
     Indication: Metabolic surgery
     Dosage: DOSE DESCRIPTION : DOSAGE NOT SPECIFIED
     Route: 048
     Dates: start: 20221214, end: 20221220
  2. LIDOCAINE [Suspect]
     Active Substance: LIDOCAINE
     Indication: Metabolic surgery
     Dosage: DOSE DESCRIPTION : UNK
     Route: 042
     Dates: start: 20221214, end: 20221214
  3. ESOMEPRAZOLE [Suspect]
     Active Substance: ESOMEPRAZOLE
     Indication: Prophylaxis against gastrointestinal ulcer
     Dosage: DOSE DESCRIPTION : UNK
     Route: 048
     Dates: start: 20221214, end: 20221220
  4. MORPHINE SULFATE [Suspect]
     Active Substance: MORPHINE SULFATE
     Indication: Procedural pain
     Dosage: DOSE DESCRIPTION : UNK
     Route: 042
     Dates: start: 20221214, end: 20221214
  5. DEXAMETHASONE [Suspect]
     Active Substance: DEXAMETHASONE
     Indication: Metabolic surgery
     Dosage: DOSE DESCRIPTION : UNK
     Route: 042
     Dates: start: 20221214, end: 20221214
  6. GENTAMICIN SULFATE [Suspect]
     Active Substance: GENTAMICIN SULFATE
     Indication: Metabolic surgery
     Dosage: DOSE DESCRIPTION : DOSAGE NOT SPECIFIED
     Route: 042
     Dates: start: 20221214, end: 20221214
  7. EPHEDRINE HYDROCHLORIDE [Suspect]
     Active Substance: EPHEDRINE HYDROCHLORIDE
     Indication: Metabolic surgery
     Dosage: DOSE DESCRIPTION : UNK
     Route: 042
     Dates: start: 20221214, end: 20221214
  8. PROPOFOL [Suspect]
     Active Substance: PROPOFOL
     Indication: Metabolic surgery
     Dosage: DOSE DESCRIPTION : UNK
     Route: 042
     Dates: start: 20221214, end: 20221214
  9. CEFTRIAXONE [Suspect]
     Active Substance: CEFTRIAXONE\CEFTRIAXONE SODIUM
     Indication: Metabolic surgery
     Dosage: DOSE DESCRIPTION : 4 G
     Route: 042
     Dates: start: 20221214, end: 20221214
  10. CISATRACURIUM BESYLATE [Suspect]
     Active Substance: CISATRACURIUM BESYLATE
     Indication: Metabolic surgery
     Dosage: DOSE DESCRIPTION : UNK
     Route: 042
     Dates: start: 20221214, end: 20221214
  11. PHLOROGLUCINOL DIHYDRATE [Suspect]
     Active Substance: PHLOROGLUCINOL DIHYDRATE
     Indication: Metabolic surgery
     Dosage: DOSE DESCRIPTION : UNK
     Route: 048
     Dates: start: 20221214, end: 20221220
  12. NEFOPAM HYDROCHLORIDE [Suspect]
     Active Substance: NEFOPAM HYDROCHLORIDE
     Indication: Procedural pain
     Dosage: DOSE DESCRIPTION : UNK
     Route: 042
     Dates: start: 20221214, end: 20221214
  13. ENOXAPARIN SODIUM [Suspect]
     Active Substance: ENOXAPARIN SODIUM
     Indication: Thrombosis prophylaxis
     Dosage: DOSE DESCRIPTION : 4000 IU 4 000 UI ANTI-XA/0,4 ML
     Route: 058
     Dates: start: 20221214, end: 20221214

REACTIONS (2)
  - Toxic skin eruption [Recovered/Resolved]
  - Eosinophilia [Recovered/Resolved]

NARRATIVE: CASE EVENT DATE: 20221214
